FAERS Safety Report 23990698 (Version 1)
Quarter: 2024Q2

REPORT INFORMATION
  Report Type: Spontaneous
  Country: CN (occurrence: CN)
  Receive Date: 20240619
  Receipt Date: 20240619
  Transmission Date: 20240716
  Serious: Yes (Hospitalization)
  Sender: FDA-Public Use
  Company Number: CN-FreseniusKabi-FK202409481

PATIENT
  Age: 92 Year
  Sex: Male
  Weight: 65 kg

DRUGS (1)
  1. LACTULOSE [Suspect]
     Active Substance: LACTULOSE
     Indication: Faecal disimpaction
     Dosage: FORM OF ADMIN: SOLUTION?ROUTE OF ADMIN: ORAL
     Dates: start: 20240613, end: 20240614

REACTIONS (2)
  - Diarrhoea [Recovering/Resolving]
  - Somnolence [Recovering/Resolving]

NARRATIVE: CASE EVENT DATE: 20240613
